FAERS Safety Report 26121579 (Version 1)
Quarter: 2025Q4

REPORT INFORMATION
  Report Type: Spontaneous
  Country: US (occurrence: US)
  Receive Date: 20251204
  Receipt Date: 20251204
  Transmission Date: 20260118
  Serious: No
  Sender: SANOFI AVENTIS
  Company Number: US-SA-2025SA362417

PATIENT
  Age: 20 Year
  Sex: Female

DRUGS (1)
  1. DUPIXENT [Suspect]
     Active Substance: DUPILUMAB
     Indication: Chronic spontaneous urticaria
     Dosage: UNK
     Dates: start: 20251201

REACTIONS (3)
  - Swelling [Unknown]
  - Skin depigmentation [Unknown]
  - Pruritus [Unknown]

NARRATIVE: CASE EVENT DATE: 20251203
